FAERS Safety Report 9665663 (Version 1)
Quarter: 2013Q4

REPORT INFORMATION
  Report Type: Spontaneous
  Country: FR (occurrence: FR)
  Receive Date: 20131104
  Receipt Date: 20131104
  Transmission Date: 20140711
  Serious: Yes (Hospitalization)
  Sender: FDA-Public Use
  Company Number: PHHY2013FR123908

PATIENT
  Age: 25 Year
  Sex: Male

DRUGS (4)
  1. LEPONEX [Suspect]
     Dosage: 75 MG, DAILY
     Route: 048
     Dates: start: 201112
  2. LEPONEX [Suspect]
     Dosage: 325 MG, DAILY
     Route: 048
     Dates: start: 201301
  3. DAFALGAN [Suspect]
     Dosage: 1 G, UNK
     Route: 048
     Dates: start: 20130617
  4. PRIMPERAN [Suspect]
     Dosage: 10 MG, UNK
     Route: 048
     Dates: start: 20130617

REACTIONS (1)
  - Brugada syndrome [Recovered/Resolved]
